FAERS Safety Report 25743349 (Version 1)
Quarter: 2025Q3

REPORT INFORMATION
  Report Type: Spontaneous
  Country: AU (occurrence: AU)
  Receive Date: 20250830
  Receipt Date: 20250830
  Transmission Date: 20251021
  Serious: Yes (Hospitalization)
  Sender: AMGEN
  Company Number: AU-AMGEN-AUSSP2025167129

PATIENT
  Age: 49 Year
  Sex: Male

DRUGS (22)
  1. ADALIMUMAB [Suspect]
     Active Substance: ADALIMUMAB
     Indication: Pyoderma gangrenosum
     Route: 065
  2. ADALIMUMAB [Suspect]
     Active Substance: ADALIMUMAB
     Route: 065
  3. ADALIMUMAB [Suspect]
     Active Substance: ADALIMUMAB
     Route: 065
  4. ADALIMUMAB [Suspect]
     Active Substance: ADALIMUMAB
     Dosage: UNK, QWK
     Route: 065
  5. USTEKINUMAB [Suspect]
     Active Substance: USTEKINUMAB
     Indication: Pyoderma gangrenosum
     Dosage: 300 MILLIGRAM, 4 TIMES/WK
     Route: 065
  6. MYCOPHENOLATE MOFETIL [Suspect]
     Active Substance: MYCOPHENOLATE MOFETIL
     Indication: Pyoderma gangrenosum
     Dosage: 1 MILLIGRAM, BID
     Route: 065
  7. CYCLOSPORINE [Suspect]
     Active Substance: CYCLOSPORINE
     Indication: Pyoderma gangrenosum
     Dosage: 3.5 MILLIGRAM/KILOGRAM, QD, DIVIDED INTO 2 DOSES
     Route: 065
  8. IMMUNE GLOBULIN NOS [Suspect]
     Active Substance: IMMUNE GLOBULIN NOS
     Indication: Pyoderma gangrenosum
     Route: 040
  9. IMMUNE GLOBULIN NOS [Suspect]
     Active Substance: IMMUNE GLOBULIN NOS
     Dosage: UNK UNK, 4 TIMES/WK
     Route: 040
  10. SECUKINUMAB [Suspect]
     Active Substance: SECUKINUMAB
     Indication: Pyoderma gangrenosum
     Route: 065
  11. SECUKINUMAB [Suspect]
     Active Substance: SECUKINUMAB
     Route: 065
  12. SECUKINUMAB [Suspect]
     Active Substance: SECUKINUMAB
     Route: 065
  13. SECUKINUMAB [Suspect]
     Active Substance: SECUKINUMAB
     Route: 065
  14. SECUKINUMAB [Suspect]
     Active Substance: SECUKINUMAB
     Route: 065
  15. SECUKINUMAB [Suspect]
     Active Substance: SECUKINUMAB
     Dosage: UNK UNK, 4 TIMES/WK
     Route: 065
  16. PREDNISOLONE [Suspect]
     Active Substance: PREDNISOLONE
     Indication: Pyoderma gangrenosum
     Dosage: 27-75 MG, QD
     Route: 065
  17. METHYLPREDNISOLONE [Suspect]
     Active Substance: METHYLPREDNISOLONE
     Indication: Pyoderma gangrenosum
     Dosage: 500 MILLIGRAM, QD, FOR 3 DAYS, ONE COURSE
     Route: 040
  18. TACROLIMUS [Suspect]
     Active Substance: TACROLIMUS
     Indication: Pyoderma gangrenosum
     Dosage: 2 MILLIGRAM, BID
     Route: 065
  19. INFLIXIMAB [Suspect]
     Active Substance: INFLIXIMAB
     Indication: Pyoderma gangrenosum
     Dosage: 750 MILLIGRAM, 4 TIMES/WK
     Route: 065
  20. CANAKINUMAB [Suspect]
     Active Substance: CANAKINUMAB
     Indication: Pyoderma gangrenosum
     Dosage: 300 MILLIGRAM, Q4WK
     Route: 065
  21. CANAKINUMAB [Suspect]
     Active Substance: CANAKINUMAB
     Route: 065
  22. CANAKINUMAB [Suspect]
     Active Substance: CANAKINUMAB
     Dosage: 300 MILLIGRAM, 4 TIMES/WK
     Route: 065

REACTIONS (4)
  - Pseudomonal sepsis [Unknown]
  - Skin infection [Unknown]
  - Drug ineffective for unapproved indication [Unknown]
  - Off label use [Unknown]
